FAERS Safety Report 9113028 (Version 2)
Quarter: 2013Q1

REPORT INFORMATION
  Report Type: Report from Study
  Country: CA (occurrence: CA)
  Receive Date: 20130211
  Receipt Date: 20130227
  Transmission Date: 20140127
  Serious: Yes (Death)
  Sender: FDA-Public Use
  Company Number: CA-ROCHE-1189628

PATIENT
  Sex: Male
  Weight: 97.5 kg

DRUGS (2)
  1. AVASTIN [Suspect]
     Indication: GLIOBLASTOMA
     Route: 042
     Dates: start: 20111028
  2. CHEMOTHERAPY (UNK INGREDIENTS) [Concomitant]
     Indication: GLIOBLASTOMA
     Route: 065

REACTIONS (1)
  - Disease progression [Fatal]
